FAERS Safety Report 4463953-1 (Version None)
Quarter: 2004Q3

REPORT INFORMATION
  Report Type: 
  Country: None (occurrence: None)
  Receive Date: 20040929
  Receipt Date: 20040914
  Transmission Date: 20050211
  Serious: Yes (Hospitalization)
  Sender: FDA-Public Use
  Company Number: 2004233479US

PATIENT
  Age: 63 Year
  Sex: Male

DRUGS (3)
  1. CAMPTOSAR [Suspect]
     Indication: SMALL CELL LUNG CANCER EXTENSIVE STAGE
     Dosage: CYCLIC
     Dates: start: 20040709, end: 20040709
  2. CARBOPLATIN [Suspect]
     Indication: SMALL CELL LUNG CANCER STAGE UNSPECIFIED
     Dosage: CYCLIC
     Dates: start: 20040709, end: 20040709
  3. PROZAC [Concomitant]

REACTIONS (4)
  - CHRONIC OBSTRUCTIVE AIRWAYS DISEASE EXACERBATED [None]
  - DELAYED EFFECTS OF RADIATION [None]
  - HYPOREFLEXIA [None]
  - RASH [None]
